FAERS Safety Report 7909158-0 (Version None)
Quarter: 2011Q4

REPORT INFORMATION
  Report Type: 
  Country: None (occurrence: None)
  Receive Date: 20111111
  Receipt Date: 20110302
  Transmission Date: 20120403
  Serious: No
  Sender: FDA-Public Use
  Company Number: US-GLAXOSMITHKLINE-A0916354A

PATIENT
  Sex: Male

DRUGS (3)
  1. FUROSEMIDE [Concomitant]
  2. COREG [Suspect]
     Indication: MYOCARDITIS
     Dosage: 20MG PER DAY
     Route: 048
     Dates: start: 20030101, end: 20090101
  3. DIGOXIN [Concomitant]

REACTIONS (1)
  - ASTHENIA [None]
